FAERS Safety Report 21831279 (Version 1)
Quarter: 2023Q1

REPORT INFORMATION
  Report Type: Spontaneous
  Country: US (occurrence: US)
  Receive Date: 20230106
  Receipt Date: 20230106
  Transmission Date: 20230418
  Serious: No
  Sender: FDA-Public Use
  Company Number: US-PFIZER INC-202300003679

PATIENT
  Age: 66 Year
  Sex: Female

DRUGS (4)
  1. IBRANCE [Suspect]
     Active Substance: PALBOCICLIB
     Indication: Breast cancer metastatic
     Dosage: 125 MG
     Dates: start: 202206
  2. IBRANCE [Suspect]
     Active Substance: PALBOCICLIB
     Dosage: 75 MG, 1X/DAY
     Dates: start: 202208
  3. FASLODEX [Suspect]
     Active Substance: FULVESTRANT
     Dosage: 250 MG IN EACH BUTTOCK (DAY 1, DAY 15 AND DAY 29), THEN ONCE A MONTH
     Dates: start: 20221025
  4. LETROZOLE [Concomitant]
     Active Substance: LETROZOLE
     Dosage: UNK
     Dates: end: 202210

REACTIONS (2)
  - Fatigue [Unknown]
  - Weight increased [Unknown]
